FAERS Safety Report 20518760 (Version 1)
Quarter: 2022Q1

REPORT INFORMATION
  Report Type: Spontaneous
  Country: US (occurrence: None)
  Receive Date: 20220224
  Receipt Date: 20220224
  Transmission Date: 20220424
  Serious: No
  Sender: FDA-Public Use
  Company Number: None

PATIENT
  Age: 87 Year
  Sex: Female

DRUGS (1)
  1. PROLIA [Suspect]
     Active Substance: DENOSUMAB

REACTIONS (5)
  - Dizziness [None]
  - Headache [None]
  - Eye pruritus [None]
  - Dry eye [None]
  - Eye swelling [None]

NARRATIVE: CASE EVENT DATE: 20220207
